FAERS Safety Report 4353087-9 (Version None)
Quarter: 2004Q2

REPORT INFORMATION
  Report Type: 
  Country: None (occurrence: None)
  Receive Date: 20040429
  Receipt Date: 20040426
  Transmission Date: 20050107
  Serious: Yes (Hospitalization)
  Sender: FDA-Public Use
  Company Number: 2003149673GB

PATIENT
  Age: 56 Year
  Sex: Male

DRUGS (1)
  1. GENOTROPIN [Suspect]
     Indication: HYPOPITUITARISM
     Dosage: 0.4 MG, QD, UNK
     Route: 065
     Dates: start: 20001115, end: 20020301

REACTIONS (1)
  - PROSTATE CANCER [None]
